FAERS Safety Report 8355576-9 (Version None)
Quarter: 2012Q2

REPORT INFORMATION
  Report Type: 
  Country: None (occurrence: None)
  Receive Date: 20120513
  Receipt Date: 20120503
  Transmission Date: 20120825
  Serious: Yes (Hospitalization)
  Sender: FDA-Public Use
  Company Number: US-ELI_LILLY_AND_COMPANY-US201205002564

PATIENT
  Age: 84 Year
  Sex: Female

DRUGS (10)
  1. VITAMIN B COMPLEX CAP [Concomitant]
     Dosage: ONE TABLET QD
  2. LIBRAX [Concomitant]
     Dosage: 8 MG, BID
  3. DOMPERIDONE [Concomitant]
     Indication: IMPAIRED GASTRIC EMPTYING
     Dosage: UNK UNK, UNKNOWN
  4. PROTONIX [Concomitant]
     Dosage: 40 MG, BID
  5. MIRALAX [Concomitant]
     Dosage: 1 TBS BEFORE BED
  6. ASPIRIN [Concomitant]
     Dosage: 81 MG, 3/W
  7. CALCIUM [Concomitant]
     Dosage: 600 MG, QD
  8. FORTEO [Suspect]
     Indication: OSTEOPOROSIS
     Dosage: UNK UNK, QD
     Dates: start: 20101218
  9. AMITRIPTYLINE HCL [Concomitant]
     Dosage: 10 MG, BEFORE BED
  10. VITAMIN D [Concomitant]
     Dosage: 1000 U, QD

REACTIONS (11)
  - BLOOD POTASSIUM DECREASED [None]
  - URINARY TRACT INFECTION [None]
  - FALL [None]
  - WEIGHT INCREASED [None]
  - BLOOD PRESSURE DECREASED [None]
  - ASTHENIA [None]
  - DEHYDRATION [None]
  - PNEUMONIA [None]
  - LACERATION [None]
  - FATIGUE [None]
  - BREATH SOUNDS ABNORMAL [None]
